FAERS Safety Report 6436287-3 (Version None)
Quarter: 2009Q4

REPORT INFORMATION
  Report Type: 
  Country: None (occurrence: None)
  Receive Date: 20091111
  Receipt Date: 20091103
  Transmission Date: 20100525
  Serious: Yes (Death)
  Sender: FDA-Public Use
  Company Number: A0816318A

PATIENT
  Age: 80 Year
  Sex: Male

DRUGS (1)
  1. AVANDIA [Suspect]
     Route: 065
     Dates: start: 19991101, end: 20050101

REACTIONS (3)
  - CARDIAC ARREST [None]
  - FLUID RETENTION [None]
  - MYOCARDIAL INFARCTION [None]
